FAERS Safety Report 13206028 (Version 1)
Quarter: 2017Q1

REPORT INFORMATION
  Report Type: Spontaneous
  Country: US (occurrence: US)
  Receive Date: 20170209
  Receipt Date: 20170209
  Transmission Date: 20170428
  Serious: No
  Sender: FDA-Public Use
  Company Number: US-BAYER-2017-026134

PATIENT
  Sex: Female

DRUGS (1)
  1. MIRENA [Suspect]
     Active Substance: LEVONORGESTREL
     Indication: CONTRACEPTION
     Dosage: 20 MCG/24HR, CONT
     Route: 015
     Dates: start: 201406, end: 20170206

REACTIONS (3)
  - Hypomenorrhoea [None]
  - Vaginal odour [Recovered/Resolved]
  - Menstruation irregular [None]

NARRATIVE: CASE EVENT DATE: 2016
